FAERS Safety Report 5288634-6 (Version None)
Quarter: 2007Q2

REPORT INFORMATION
  Report Type: 
  Country: None (occurrence: None)
  Receive Date: 20070405
  Receipt Date: 20070403
  Transmission Date: 20071010
  Serious: No
  Sender: FDA-Public Use
  Company Number: US-BAXTER-2007BH003326

PATIENT
  Age: 30 Year
  Sex: Male

DRUGS (1)
  1. MEPERIDINE HCL [Suspect]
     Indication: DRUG USE FOR UNKNOWN INDICATION
     Dosage: DOSE UNIT:UNKNOWN
     Route: 042
     Dates: end: 20070323

REACTIONS (2)
  - ACCIDENTAL OVERDOSE [None]
  - RESPIRATORY DEPRESSION [None]
